FAERS Safety Report 7827127-6 (Version None)
Quarter: 2011Q4

REPORT INFORMATION
  Report Type: 
  Country: None (occurrence: None)
  Receive Date: 20111020
  Receipt Date: 20111013
  Transmission Date: 20120403
  Serious: Yes (Hospitalization)
  Sender: FDA-Public Use
  Company Number: US-SANOFI-AVENTIS-2011SA068291

PATIENT
  Age: 65 Year
  Sex: Male

DRUGS (1)
  1. UROXATRAL [Suspect]
     Route: 065

REACTIONS (1)
  - LOSS OF CONSCIOUSNESS [None]
